FAERS Safety Report 9059041 (Version 1)
Quarter: 2013Q1

REPORT INFORMATION
  Report Type: Spontaneous
  Country: US (occurrence: US)
  Receive Date: 20130211
  Receipt Date: 20130211
  Transmission Date: 20140127
  Serious: No
  Sender: FDA-Public Use
  Company Number: US-BRISTOL-MYERS SQUIBB COMPANY-16624207

PATIENT
  Age: 71 Year
  Sex: Female

DRUGS (9)
  1. METFORMIN HCL [Suspect]
  2. LANTUS [Suspect]
     Indication: TYPE 2 DIABETES MELLITUS
     Dosage: 1DF=15 UNITS?100IU/ML
     Route: 058
  3. GLIMEPIRIDE [Concomitant]
  4. AMLODIPINE [Concomitant]
  5. LISINOPRIL [Concomitant]
  6. LEVOTHYROXINE [Concomitant]
  7. AMITRIPTYLINE [Concomitant]
  8. LOVASTATIN [Concomitant]
  9. LORATADINE [Concomitant]

REACTIONS (2)
  - Rash [Unknown]
  - Glycosylated haemoglobin increased [Unknown]
